FAERS Safety Report 4434351-1 (Version None)
Quarter: 2004Q3

REPORT INFORMATION
  Report Type: 
  Country: None (occurrence: None)
  Receive Date: 20040826
  Receipt Date: 20040817
  Transmission Date: 20050211
  Serious: Yes (Hospitalization)
  Sender: FDA-Public Use
  Company Number: US-MERCK-0408USA01484

PATIENT
  Age: 80 Year
  Sex: Male

DRUGS (4)
  1. ATENOLOL [Concomitant]
     Route: 065
  2. LASIX [Concomitant]
     Route: 065
  3. VIOXX [Suspect]
     Route: 048
     Dates: start: 20040812, end: 20040814
  4. STATIN (UNSPECIFIED) [Concomitant]
     Route: 065

REACTIONS (3)
  - FEELING HOT [None]
  - RASH [None]
  - VOMITING [None]
